FAERS Safety Report 10211726 (Version 1)
Quarter: 2014Q2

REPORT INFORMATION
  Report Type: Spontaneous
  Country: NL (occurrence: None)
  Receive Date: 20140528
  Receipt Date: 20140528
  Transmission Date: 20141212
  Serious: Yes (Hospitalization)
  Sender: FDA-Public Use
  Company Number: IPC201405-000247

PATIENT
  Age: 45 Year
  Sex: Female

DRUGS (6)
  1. METOPROLOL TARTRATE (METOPROLOL TARTRATE) (METOPROLOL TARTRATE) [Suspect]
  2. LISINOPRIL (LISINOPRIL) (LISINOPRIL) [Suspect]
  3. CHLORTHALIDONE (CHLORTHALIDONE) (CHLORTHALIDONE) [Suspect]
  4. METHOTREXATE (METHOTREXATE) (METHOTREXATE) [Suspect]
  5. OMEPRAZOLE (OMEPRAZOLE) (OMEPRAZOLE) [Suspect]
  6. SIMVASTATIN (SIMVASTATIN) (SIMVASTATIN) [Suspect]

REACTIONS (3)
  - Angioedema [None]
  - Swollen tongue [None]
  - No therapeutic response [None]
